FAERS Safety Report 6342469-1 (Version None)
Quarter: 2009Q3

REPORT INFORMATION
  Report Type: 
  Country: None (occurrence: None)
  Receive Date: 20090908
  Receipt Date: 20090902
  Transmission Date: 20100115
  Serious: Yes (Death, Other)
  Sender: FDA-Public Use
  Company Number: BR-ELI_LILLY_AND_COMPANY-BR200906006267

PATIENT
  Age: 29 Year
  Sex: Male
  Weight: 140 kg

DRUGS (1)
  1. XIGRIS [Suspect]
     Indication: SEPTIC SHOCK
     Dosage: 20 MG, UNKNOWN
     Route: 042
     Dates: start: 20090623

REACTIONS (4)
  - CARDIO-RESPIRATORY ARREST [None]
  - HAEMORRHAGE [None]
  - INFLUENZA [None]
  - PUPILS UNEQUAL [None]
